FAERS Safety Report 7598605-2 (Version None)
Quarter: 2011Q3

REPORT INFORMATION
  Report Type: 
  Country: None (occurrence: None)
  Receive Date: 20110710
  Receipt Date: 20110627
  Transmission Date: 20111222
  Serious: Yes (Other)
  Sender: FDA-Public Use
  Company Number: US-AMGEN-USASP2011027237

PATIENT
  Age: 58 Year
  Sex: Female
  Weight: 53.832 kg

DRUGS (17)
  1. ASPIRIN [Concomitant]
  2. CLONIDINE [Concomitant]
     Dosage: 0.2 MG, UNK
  3. PREDNISONE [Concomitant]
  4. RESTORIL [Concomitant]
  5. CELLCEPT [Concomitant]
     Dosage: 750 MG, BID
  6. CELEXA [Concomitant]
  7. AMLODIPINE BESYLATE [Concomitant]
  8. HYDRALAZINE HCL [Concomitant]
     Dosage: 50 MG, TID
  9. FUROSEMIDE [Concomitant]
  10. PROCRIT [Suspect]
     Indication: NEPHRECTOMY
  11. COREG [Concomitant]
     Dosage: UNK UNK, BID
  12. CALCITRIOL [Concomitant]
  13. FOSAMAX [Concomitant]
     Dosage: 35 MG, QWK
  14. METAMUCIL                          /00029101/ [Concomitant]
  15. BACTRIM [Concomitant]
  16. VITAMIN B COMPLEX                  /00003501/ [Concomitant]
  17. PROCRIT [Suspect]
     Indication: RENAL CANCER
     Dosage: UNK UNK, 3 TIMES/WK

REACTIONS (4)
  - ANAEMIA [None]
  - HYPOTENSION [None]
  - BONE MARROW DISORDER [None]
  - THERAPEUTIC RESPONSE DECREASED [None]
